FAERS Safety Report 9944049 (Version 1)
Quarter: 2014Q1

REPORT INFORMATION
  Report Type: Spontaneous
  Country: US (occurrence: US)
  Receive Date: 20140303
  Receipt Date: 20140303
  Transmission Date: 20141002
  Serious: No
  Sender: FDA-Public Use
  Company Number: US-GILEAD-2012-0052423

PATIENT
  Age: 68 Year
  Sex: Female

DRUGS (3)
  1. RANEXA [Suspect]
     Indication: PRODUCT USED FOR UNKNOWN INDICATION
     Dosage: 1000 MG, UNK
     Route: 048
  2. RANEXA [Suspect]
     Dosage: 500 MG, BID
  3. PROVIGIL [Concomitant]
     Indication: FIBROMYALGIA

REACTIONS (3)
  - Facial pain [Unknown]
  - Dyspnoea [Unknown]
  - Abdominal pain [Unknown]
